FAERS Safety Report 16636618 (Version 1)
Quarter: 2019Q3

REPORT INFORMATION
  Report Type: Spontaneous
  Country: US (occurrence: US)
  Receive Date: 20190726
  Receipt Date: 20190726
  Transmission Date: 20191004
  Serious: No
  Sender: FDA-Public Use
  Company Number: None

PATIENT
  Age: 53 Year
  Sex: Female

DRUGS (1)
  1. NORFLEX [Suspect]
     Active Substance: ORPHENADRINE CITRATE
     Dosage: ?          OTHER FREQUENCY:X 1;?
     Route: 042
     Dates: start: 20190725, end: 20190725

REACTIONS (2)
  - Injection site pruritus [None]
  - Pruritus [None]

NARRATIVE: CASE EVENT DATE: 20190725
